FAERS Safety Report 6994125-4 (Version None)
Quarter: 2010Q3

REPORT INFORMATION
  Report Type: 
  Country: None (occurrence: None)
  Receive Date: 20100917
  Receipt Date: 20100504
  Transmission Date: 20110219
  Serious: No
  Sender: FDA-Public Use
  Company Number: US-ASTRAZENECA-2010SE20222

PATIENT
  Age: 46 Year
  Sex: Female
  Weight: 72.6 kg

DRUGS (12)
  1. SEROQUEL [Suspect]
     Indication: ANXIETY
     Route: 048
     Dates: start: 20090201, end: 20100301
  2. SEROQUEL [Suspect]
     Indication: DEPRESSION
     Route: 048
     Dates: start: 20090201, end: 20100301
  3. SEROQUEL [Suspect]
     Indication: PANIC ATTACK
     Route: 048
     Dates: start: 20090201, end: 20100301
  4. SEROQUEL [Suspect]
     Route: 048
  5. SEROQUEL [Suspect]
     Route: 048
  6. SEROQUEL [Suspect]
     Route: 048
  7. SEROQUEL [Suspect]
     Route: 048
  8. SEROQUEL [Suspect]
     Route: 048
  9. SEROQUEL [Suspect]
     Route: 048
  10. WELLBUTRIN [Concomitant]
  11. DIAZEPAM [Concomitant]
  12. ZOLOFT [Concomitant]

REACTIONS (6)
  - ANXIETY [None]
  - DRUG DOSE OMISSION [None]
  - FEELING ABNORMAL [None]
  - IMPATIENCE [None]
  - SOMNOLENCE [None]
  - WEIGHT INCREASED [None]
